FAERS Safety Report 7219566-1 (Version None)
Quarter: 2011Q1

REPORT INFORMATION
  Report Type: 
  Country: None (occurrence: None)
  Receive Date: 20110111
  Receipt Date: 20110106
  Transmission Date: 20110831
  Serious: Yes (Hospitalization)
  Sender: FDA-Public Use
  Company Number: NL-BAXTER-2010BH021373

PATIENT
  Age: 42 Year
  Sex: Female

DRUGS (35)
  1. GAMMAGARD LIQUID [Suspect]
     Indication: MULTIPLE SCLEROSIS
     Route: 042
     Dates: start: 20100806, end: 20100806
  2. GAMMAGARD LIQUID [Suspect]
     Route: 042
     Dates: start: 20100806, end: 20100806
  3. BACLOFEN [Concomitant]
  4. RIVOTRIL [Concomitant]
  5. MOVICOLON [Concomitant]
  6. UBRETID [Concomitant]
  7. SIMVASTATIN [Concomitant]
  8. ESOMEPRAZOLE [Concomitant]
  9. GAMMAGARD LIQUID [Suspect]
     Route: 042
     Dates: start: 20101029, end: 20101029
  10. GAMMAGARD LIQUID [Suspect]
     Route: 042
     Dates: start: 20101130, end: 20101130
  11. AMITRIPTYLINE [Concomitant]
  12. PARACETAMOL [Concomitant]
  13. GAMMAGARD LIQUID [Suspect]
     Route: 042
     Dates: start: 20100903, end: 20100903
  14. GAMMAGARD LIQUID [Suspect]
     Route: 042
     Dates: start: 20101130, end: 20101130
  15. ROPINIROLE [Concomitant]
  16. GAMMAGARD LIQUID [Suspect]
     Route: 042
     Dates: start: 20100319
  17. GAMMAGARD LIQUID [Suspect]
     Route: 042
     Dates: start: 20100319
  18. GAMMAGARD LIQUID [Suspect]
     Route: 042
     Dates: start: 20100929, end: 20100929
  19. GAMMAGARD LIQUID [Suspect]
     Route: 042
     Dates: start: 20100903, end: 20100903
  20. GAMMAGARD LIQUID [Suspect]
     Route: 042
     Dates: start: 20101130, end: 20101130
  21. DUSPATAL [Concomitant]
  22. TIZANIDINE HCL [Concomitant]
     Dates: end: 20100910
  23. GAMMAGARD LIQUID [Suspect]
     Route: 042
     Dates: start: 20100806, end: 20100806
  24. GAMMAGARD LIQUID [Suspect]
     Route: 042
     Dates: start: 20100929, end: 20100929
  25. GAMMAGARD LIQUID [Suspect]
     Route: 042
     Dates: start: 20101029, end: 20101029
  26. ANTIDEPRESSANTS [Concomitant]
  27. GAMMAGARD LIQUID [Suspect]
     Route: 042
     Dates: start: 20100929, end: 20100929
  28. GAMMAGARD LIQUID [Suspect]
     Route: 042
     Dates: start: 20100929, end: 20100929
  29. GAMMAGARD LIQUID [Suspect]
     Route: 042
     Dates: start: 20101130, end: 20101130
  30. INDOMETACIN [Concomitant]
     Dates: start: 20100101
  31. GAMMAGARD LIQUID [Suspect]
     Indication: OFF LABEL USE
     Route: 042
     Dates: start: 20100806, end: 20100806
  32. GAMMAGARD LIQUID [Suspect]
     Route: 042
     Dates: start: 20101029, end: 20101029
  33. GAMMAGARD LIQUID [Suspect]
     Route: 042
     Dates: start: 20101029, end: 20101029
  34. CELEBREX [Concomitant]
     Dates: end: 20100825
  35. PANTOZOL [Concomitant]

REACTIONS (17)
  - BACK PAIN [None]
  - DIZZINESS [None]
  - MALAISE [None]
  - PAIN IN EXTREMITY [None]
  - NECK PAIN [None]
  - ABDOMINAL DISTENSION [None]
  - FATIGUE [None]
  - SENSATION OF HEAVINESS [None]
  - CONSTIPATION [None]
  - NAUSEA [None]
  - HEMICEPHALALGIA [None]
  - HYPERHIDROSIS [None]
  - FEELING ABNORMAL [None]
  - GAIT DISTURBANCE [None]
  - HEADACHE [None]
  - PARAESTHESIA [None]
  - CONDITION AGGRAVATED [None]
